FAERS Safety Report 5341995-1 (Version None)
Quarter: 2007Q2

REPORT INFORMATION
  Report Type: 
  Country: None (occurrence: None)
  Receive Date: 20070530
  Receipt Date: 20070530
  Transmission Date: 20071010
  Serious: Yes (Hospitalization)
  Sender: FDA-Public Use
  Company Number: None

PATIENT
  Sex: Female
  Weight: 48 kg

DRUGS (6)
  1. EXJADE [Suspect]
     Indication: IRON OVERLOAD
     Dosage: 1000 MG DAILY P.O.
     Route: 048
     Dates: start: 20070301, end: 20070501
  2. HYDROXYUREA [Concomitant]
  3. MOTRIN [Concomitant]
  4. FOLIC ACID [Concomitant]
  5. TYLENOL W/ CODEINE [Concomitant]
  6. ASCORBIC ACID [Concomitant]

REACTIONS (1)
  - CHOLECYSTITIS ACUTE [None]
